FAERS Safety Report 7095627-5 (Version None)
Quarter: 2010Q4

REPORT INFORMATION
  Report Type: 
  Country: None (occurrence: None)
  Receive Date: 20101111
  Receipt Date: 20101104
  Transmission Date: 20110411
  Serious: Yes (Other)
  Sender: FDA-Public Use
  Company Number: US-ALLERGAN-1014199US

PATIENT
  Age: 60 Year
  Sex: Female

DRUGS (1)
  1. RESTASISA? [Suspect]
     Indication: SJOGREN'S SYNDROME
     Dosage: 1 GTT, BID
     Route: 047
     Dates: start: 20100601

REACTIONS (5)
  - AGITATION [None]
  - CONFUSIONAL STATE [None]
  - DISTURBANCE IN ATTENTION [None]
  - LUPUS ENCEPHALITIS [None]
  - SYSTEMIC LUPUS ERYTHEMATOSUS [None]
